FAERS Safety Report 15881257 (Version 1)
Quarter: 2019Q1

REPORT INFORMATION
  Report Type: Spontaneous
  Country: CA (occurrence: CA)
  Receive Date: 20190128
  Receipt Date: 20190128
  Transmission Date: 20190417
  Serious: Yes (Death, Life-Threatening, Other)
  Sender: FDA-Public Use
  Company Number: CA-UNITED THERAPEUTICS-UNT-2019-000938

PATIENT
  Age: 52 Year
  Sex: Female

DRUGS (1)
  1. REMODULIN [Suspect]
     Active Substance: TREPROSTINIL
     Indication: PULMONARY ARTERIAL HYPERTENSION
     Dosage: UNK
     Route: 058
     Dates: start: 20120412, end: 20190120

REACTIONS (6)
  - Infusion site infection [Recovering/Resolving]
  - Cardiac arrest [Fatal]
  - Infusion site erosion [Recovering/Resolving]
  - Infusion site pain [Recovering/Resolving]
  - Pneumococcal sepsis [Fatal]
  - Infusion site swelling [Recovering/Resolving]

NARRATIVE: CASE EVENT DATE: 20190120
